FAERS Safety Report 10213379 (Version 1)
Quarter: 2014Q2

REPORT INFORMATION
  Report Type: Spontaneous
  Country: US (occurrence: None)
  Receive Date: 20140530
  Receipt Date: 20140530
  Transmission Date: 20141212
  Serious: Yes (Other)
  Sender: FDA-Public Use
  Company Number: None

PATIENT
  Sex: Male

DRUGS (1)
  1. PHYTONADIONE [Suspect]
     Indication: PROPHYLAXIS
     Route: 030
     Dates: start: 20140523, end: 20140523

REACTIONS (1)
  - Injury associated with device [None]
